FAERS Safety Report 4455117-2 (Version None)
Quarter: 2004Q3

REPORT INFORMATION
  Report Type: 
  Country: None (occurrence: None)
  Receive Date: 20040917
  Receipt Date: 20040909
  Transmission Date: 20050211
  Serious: Yes (Life-Threatening)
  Sender: FDA-Public Use
  Company Number: 2004-118438-NL

PATIENT
  Age: 63 Year
  Sex: Female

DRUGS (11)
  1. DANAPAROID SODIUM [Suspect]
     Indication: DISSEMINATED INTRAVASCULAR COAGULATION
     Dosage: 2500 ANTI_XA, INTRAVENOUS NOS
     Route: 042
     Dates: start: 20030606, end: 20030619
  2. GLYCYRRHIZIC ACID, AMMONIUM SALT [Suspect]
     Indication: HEPATIC FUNCTION ABNORMAL
     Dosage: 40 ML/20 ML
  3. MINOCYCLINE HCL [Concomitant]
  4. TEICOPLANIN [Concomitant]
  5. DOPAMINE HYDROCHLORIDE [Concomitant]
  6. METHYLPREDNISOLONE SODIUM SUCCINATE [Concomitant]
  7. MICAPUNGIN SODIUM [Concomitant]
  8. PREDNISOLONE [Concomitant]
  9. FLUCONAZOLE [Concomitant]
  10. FILGRASTIM [Concomitant]
  11. BAKTAR [Concomitant]

REACTIONS (2)
  - HYPOKALAEMIA [None]
  - PANCYTOPENIA [None]
